FAERS Safety Report 10417076 (Version 1)
Quarter: 2014Q3

REPORT INFORMATION
  Report Type: Spontaneous
  Country: US (occurrence: US)
  Receive Date: 20140828
  Receipt Date: 20140828
  Transmission Date: 20150326
  Serious: Yes (Hospitalization, Other)
  Sender: FDA-Public Use
  Company Number: US-PFIZER INC-2014239504

PATIENT
  Age: 54 Year
  Sex: Female
  Weight: 49.89 kg

DRUGS (1)
  1. LYRICA [Suspect]
     Active Substance: PREGABALIN
     Indication: FIBROMYALGIA
     Dosage: (200MG IN MORNING AND 300MG AT NIGHT), DAILY
     Dates: start: 2004

REACTIONS (1)
  - Kidney infection [Unknown]
